FAERS Safety Report 9294798 (Version 1)
Quarter: 2013Q1

REPORT INFORMATION
  Report Type: Spontaneous
  Country: US (occurrence: None)
  Receive Date: 20121227
  Receipt Date: 20121227
  Transmission Date: 20140127
  Serious: Yes (Other)
  Sender: FDA-Public Use
  Company Number: PHEH2012US004528

PATIENT
  Age: 50 Year
  Sex: Male

DRUGS (1)
  1. MYFORTIC (MYCOPHENOLIC ACID) UNKNOWN [Suspect]
     Indication: COMPLICATIONS OF TRANSPLANTED KIDNEY
     Route: 048

REACTIONS (2)
  - Diarrhoea [None]
  - Renal pain [None]
